FAERS Safety Report 22216911 (Version 3)
Quarter: 2024Q4

REPORT INFORMATION
  Report Type: Spontaneous
  Country: BR (occurrence: BR)
  Receive Date: 20230417
  Receipt Date: 20241107
  Transmission Date: 20250114
  Serious: Yes (Hospitalization, Other)
  Sender: CELLTRION
  Company Number: BR-CELLTRION INC.-2023BR007703

PATIENT

DRUGS (3)
  1. INFLIXIMAB [Suspect]
     Active Substance: INFLIXIMAB
     Indication: Rheumatoid arthritis
     Dosage: 200MG (USED 1 AMPOULE FROM EACH BATCH), EVERY 8 WEEKS
     Route: 042
     Dates: start: 20230315
  2. INFLIXIMAB [Suspect]
     Active Substance: INFLIXIMAB
     Dosage: 200MG (USED 1 AMPOULE FROM EACH BATCH), EVERY 8 WEEKS
     Route: 042
     Dates: start: 20230315
  3. METHOTREXATE SODIUM [Concomitant]
     Active Substance: METHOTREXATE SODIUM
     Dosage: 6 PILLS A WEEK

REACTIONS (9)
  - Tremor [Recovered/Resolved]
  - Malaise [Recovered/Resolved]
  - Dyspnoea [Recovered/Resolved]
  - Pruritus [Recovered/Resolved]
  - Urticaria [Recovered/Resolved]
  - Pharyngeal swelling [Recovered/Resolved]
  - Rash [Recovered/Resolved]
  - Face oedema [Recovered/Resolved]
  - Underdose [Unknown]

NARRATIVE: CASE EVENT DATE: 20230315
